FAERS Safety Report 23354636 (Version 1)
Quarter: 2024Q1

REPORT INFORMATION
  Report Type: Spontaneous
  Country: BR (occurrence: BR)
  Receive Date: 20240101
  Receipt Date: 20240101
  Transmission Date: 20240410
  Serious: Yes (Other)
  Sender: FDA-Public Use
  Company Number: BR-MALLINCKRODT-MNK202306619

PATIENT
  Age: 72 Year
  Sex: Female

DRUGS (1)
  1. AMITIZA [Suspect]
     Active Substance: LUBIPROSTONE
     Indication: Product used for unknown indication
     Route: 048

REACTIONS (21)
  - Thrombosis [Unknown]
  - Pulmonary embolism [Unknown]
  - Coronary artery embolism [Unknown]
  - Syncope [Unknown]
  - Spinal disorder [Unknown]
  - Gait inability [Unknown]
  - Pain [Unknown]
  - Asthenia [Unknown]
  - Dysstasia [Unknown]
  - Decreased appetite [Unknown]
  - Blood pressure abnormal [Unknown]
  - Bone disorder [Unknown]
  - Back pain [Unknown]
  - Anxiety [Unknown]
  - Emotional distress [Unknown]
  - Movement disorder [Unknown]
  - Discouragement [Unknown]
  - Depressed mood [Unknown]
  - Gastrointestinal disorder [Unknown]
  - Vomiting [Unknown]
  - Malaise [Unknown]

NARRATIVE: CASE EVENT DATE: 20200101
